FAERS Safety Report 8381598-8 (Version None)
Quarter: 2012Q2

REPORT INFORMATION
  Report Type: 
  Country: None (occurrence: None)
  Receive Date: 20120524
  Receipt Date: 20120424
  Transmission Date: 20120825
  Serious: Yes (Death, Hospitalization)
  Sender: FDA-Public Use
  Company Number: US-BAXTER-2012BH004074

PATIENT
  Sex: Female

DRUGS (1)
  1. DIANEAL [Suspect]
     Indication: PERITONEAL DIALYSIS
     Route: 033
     Dates: end: 20120213

REACTIONS (4)
  - PYREXIA [None]
  - HYPOTENSION [None]
  - WHITE BLOOD CELL COUNT INCREASED [None]
  - CEREBROVASCULAR ACCIDENT [None]
